FAERS Safety Report 24344287 (Version 2)
Quarter: 2024Q4

REPORT INFORMATION
  Report Type: Report from Study
  Country: US (occurrence: US)
  Receive Date: 20240920
  Receipt Date: 20241001
  Transmission Date: 20250114
  Serious: Yes (Hospitalization)
  Sender: Pyros Pharmaceuticals
  Company Number: US-PYROS PHARMACEUTICALS, INC-2024-PYROS-US000052

PATIENT
  Age: 3 Year
  Sex: Female
  Weight: 12.499 kg

DRUGS (6)
  1. VIGPODER [Suspect]
     Active Substance: VIGABATRIN
     Indication: Infantile spasms
     Dosage: 300 MG (6 ML), BID
     Route: 048
     Dates: start: 20240820, end: 20240822
  2. VIGPODER [Suspect]
     Active Substance: VIGABATRIN
     Indication: Tuberous sclerosis complex
     Dosage: 600 MG (12 ML), BID
     Route: 048
     Dates: start: 20240823, end: 20240825
  3. VIGPODER [Suspect]
     Active Substance: VIGABATRIN
     Dosage: 950 MG (19 ML), BID
     Route: 048
     Dates: start: 20240826, end: 202409
  4. VIGPODER [Suspect]
     Active Substance: VIGABATRIN
     Dosage: 700 MG (14 ML), BID
     Route: 048
     Dates: start: 202409
  5. VIMPAT [Concomitant]
     Active Substance: LACOSAMIDE
     Indication: Product used for unknown indication
     Dosage: UNK
     Route: 065
  6. VALPROIC ACID [Concomitant]
     Active Substance: VALPROIC ACID
     Indication: Product used for unknown indication
     Dosage: UNK
     Route: 065

REACTIONS (5)
  - Anger [Recovered/Resolved]
  - Dyskinesia [Recovered/Resolved]
  - Decreased appetite [Recovered/Resolved]
  - Off label use [Not Recovered/Not Resolved]
  - Prescribed overdose [Recovered/Resolved]

NARRATIVE: CASE EVENT DATE: 20240820
